FAERS Safety Report 10640854 (Version 1)
Quarter: 2014Q4

REPORT INFORMATION
  Report Type: Spontaneous
  Country: US (occurrence: None)
  Receive Date: 20141208
  Receipt Date: 20141208
  Transmission Date: 20150529
  Serious: Yes (Hospitalization, Other)
  Sender: FDA-Public Use
  Company Number: None

PATIENT
  Age: 32 Year
  Sex: Female

DRUGS (1)
  1. COPAXONE [Suspect]
     Active Substance: GLATIRAMER ACETATE
     Indication: MULTIPLE SCLEROSIS
     Dosage: 40 MG SUBCUTANEOUS 057 INJECTABLE TIW
     Route: 058
     Dates: start: 20141128

REACTIONS (4)
  - Flushing [None]
  - Confusional state [None]
  - Loss of consciousness [None]
  - Palpitations [None]

NARRATIVE: CASE EVENT DATE: 20141128
